FAERS Safety Report 7259515-3 (Version None)
Quarter: 2011Q1

REPORT INFORMATION
  Report Type: 
  Country: None (occurrence: None)
  Receive Date: 20110129
  Receipt Date: 20100121
  Transmission Date: 20110831
  Serious: No
  Sender: FDA-Public Use
  Company Number: US-PFIZER INC-2010010220

PATIENT
  Sex: Female

DRUGS (3)
  1. RELPAX [Suspect]
     Indication: MIGRAINE
     Dosage: 40 MG, UNK
     Dates: start: 20100118
  2. LEXAPRO [Concomitant]
     Dosage: 20 MG, UNK
  3. WELLBUTRIN [Concomitant]
     Dosage: 300 MG, 1X/DAY

REACTIONS (2)
  - TENSION HEADACHE [None]
  - FACIAL PAIN [None]
